FAERS Safety Report 6943441-0 (Version None)
Quarter: 2010Q3

REPORT INFORMATION
  Report Type: 
  Country: None (occurrence: None)
  Receive Date: 20100826
  Receipt Date: 20100818
  Transmission Date: 20110219
  Serious: Yes (Hospitalization)
  Sender: FDA-Public Use
  Company Number: US-AMGEN-KDC425975

PATIENT
  Age: 63 Year
  Sex: Male

DRUGS (12)
  1. PEGFILGRASTIM [Suspect]
     Indication: CHEMOTHERAPY
  2. BEVACIZUMAB [Suspect]
     Route: 042
     Dates: start: 20100624
  3. DOCETAXEL [Suspect]
     Route: 042
     Dates: start: 20100624
  4. GEMCITABINE [Suspect]
     Route: 014
     Dates: start: 20100624
  5. NYSTATIN [Concomitant]
  6. OXYCODONE HCL [Concomitant]
  7. ESOMEPRAZOLE MAGNESIUM [Concomitant]
  8. VERAPAMIL [Concomitant]
  9. DEXAMETASON [Concomitant]
  10. INDAPAMIDE [Concomitant]
  11. K-DUR [Concomitant]
  12. DRONABINOL [Concomitant]

REACTIONS (2)
  - LUNG INFECTION [None]
  - PNEUMONIA [None]
